FAERS Safety Report 5179722-3 (Version None)
Quarter: 2006Q4

REPORT INFORMATION
  Report Type: 
  Country: None (occurrence: None)
  Receive Date: 20061212
  Receipt Date: 20061129
  Transmission Date: 20070319
  Serious: Yes (Hospitalization)
  Sender: FDA-Public Use
  Company Number: 2006081869

PATIENT
  Age: 66 Year
  Sex: Female

DRUGS (4)
  1. SUTENT [Suspect]
     Indication: METASTATIC RENAL CELL CARCINOMA
     Dosage: 25 MG (25 MG, 1 IN 1 D), ORAL
     Route: 048
     Dates: start: 20060109, end: 20060629
  2. ADALAT [Concomitant]
  3. IMOVANE                 (ZOPICLONE) [Concomitant]
  4. RAMIPRIL [Concomitant]

REACTIONS (2)
  - DRUG INTOLERANCE [None]
  - HEPATITIS ACUTE [None]
